FAERS Safety Report 11984875 (Version 1)
Quarter: 2016Q1

REPORT INFORMATION
  Report Type: Spontaneous
  Country: US (occurrence: US)
  Receive Date: 20160201
  Receipt Date: 20160201
  Transmission Date: 20160526
  Serious: No
  Sender: FDA-Public Use
  Company Number: US-BAUSCH-BL-2015-027087

PATIENT
  Sex: Female

DRUGS (5)
  1. MURO 128 [Concomitant]
     Active Substance: SODIUM CHLORIDE
     Indication: DRY EYE
     Route: 047
  2. REFRESH OPTIVE [Concomitant]
     Active Substance: CARBOXYMETHYLCELLULOSE SODIUM\GLYCERIN
     Indication: DRY EYE
     Route: 065
  3. SOOTHE HYDRATION [Concomitant]
     Active Substance: POVIDONE
     Indication: DRY EYE
     Route: 065
  4. REFRESH CELLUVISC [Concomitant]
     Active Substance: CARBOXYMETHYLCELLULOSE SODIUM
     Indication: DRY EYE
     Route: 065
  5. PROLENSA [Suspect]
     Active Substance: BROMFENAC SODIUM
     Indication: PROCEDURAL PAIN
     Dosage: EACH EYE DAILY AS NEEDED
     Route: 047
     Dates: start: 20151101

REACTIONS (2)
  - Product quality issue [Unknown]
  - Drug ineffective [Unknown]

NARRATIVE: CASE EVENT DATE: 201511
